FAERS Safety Report 7750190-8 (Version None)
Quarter: 2011Q3

REPORT INFORMATION
  Report Type: 
  Country: None (occurrence: None)
  Receive Date: 20110914
  Receipt Date: 20110914
  Transmission Date: 20111222
  Serious: Yes (Hospitalization)
  Sender: FDA-Public Use
  Company Number: None

PATIENT
  Age: 82 Year
  Sex: Male
  Weight: 70 kg

DRUGS (13)
  1. ASPIRIN [Concomitant]
     Route: 048
  2. WARFARIN SODIUM [Concomitant]
     Route: 048
  3. HYDROCHLOROTHIAZIDE [Concomitant]
     Route: 048
  4. SIMVASTATIN [Concomitant]
     Route: 048
  5. METOPROLOL [Concomitant]
     Route: 048
  6. NITROGLYCERIN PRN [Concomitant]
     Route: 060
  7. DABIGATRAN [Concomitant]
     Route: 048
  8. COLCHICINE [Concomitant]
     Indication: GOUT
     Dosage: 6 MG
     Route: 048
  9. CLOPIDOGREL [Concomitant]
     Route: 048
  10. RANOLAZINE [Suspect]
     Indication: ATRIAL FIBRILLATION
     Dosage: 500 MG
     Route: 048
     Dates: start: 20100915, end: 20110607
  11. LISINOPRIL [Concomitant]
     Route: 048
  12. PANTOPRAZOLE [Concomitant]
     Route: 048
  13. ALLOPURINOL [Concomitant]
     Route: 048

REACTIONS (3)
  - MYALGIA [None]
  - ATRIAL FIBRILLATION [None]
  - PANCYTOPENIA [None]
